FAERS Safety Report 21121520 (Version 1)
Quarter: 2022Q3

REPORT INFORMATION
  Report Type: Spontaneous
  Country: US (occurrence: US)
  Receive Date: 20220722
  Receipt Date: 20220722
  Transmission Date: 20221026
  Serious: No
  Sender: FDA-Public Use
  Company Number: USA--2022-US-000446

PATIENT
  Age: 82 Year
  Sex: Female

DRUGS (5)
  1. BRIMONIDINE TARTRATE [Suspect]
     Active Substance: BRIMONIDINE TARTRATE
  2. Pataday 0.2% ophthalmic solution [Concomitant]
  3. Timoptic 0.5% ophthalmic solution [Concomitant]
  4. Vyzulta 0.024% ophthalmic solution [Concomitant]
  5. Allegra 24 hour alllergy tablet, 180 mg [Concomitant]
     Route: 048

REACTIONS (5)
  - Cough [Recovered/Resolved]
  - Oesophageal pain [Unknown]
  - Wheezing [Unknown]
  - Nasal congestion [Recovering/Resolving]
  - Insomnia [Recovered/Resolved]

NARRATIVE: CASE EVENT DATE: 20220415
